FAERS Safety Report 6258490-8 (Version None)
Quarter: 2009Q4

REPORT INFORMATION
  Report Type: 
  Country: None (occurrence: None)
  Receive Date: 20090702
  Receipt Date: 20090623
  Transmission Date: 20100525
  Serious: Yes (Death)
  Sender: FDA-Public Use
  Company Number: 310630

PATIENT
  Age: 38 Year
  Sex: Male

DRUGS (7)
  1. BLEOMYCIN SULFATE [Suspect]
     Indication: HODGKIN'S DISEASE
  2. DACARBAZINE [Suspect]
     Indication: HODGKIN'S DISEASE
  3. VINCRISTINE [Suspect]
     Indication: HODGKIN'S DISEASE
  4. (MECHLORETHAMINE) [Suspect]
     Indication: HODGKIN'S DISEASE
  5. PREDNISONE TAB [Suspect]
     Indication: HODGKIN'S DISEASE
  6. (PROCARBAZINE) [Suspect]
     Indication: HODGKIN'S DISEASE
  7. (THERAPEUTIC RADIOPHARMACEUTICALS) [Suspect]
     Indication: HODGKIN'S DISEASE

REACTIONS (3)
  - ACUTE MYELOID LEUKAEMIA [None]
  - BONE MARROW TRANSPLANT [None]
  - LEUKAEMIA RECURRENT [None]
